FAERS Safety Report 5816963-3 (Version None)
Quarter: 2008Q3

REPORT INFORMATION
  Report Type: 
  Country: None (occurrence: None)
  Receive Date: 20080722
  Receipt Date: 20080718
  Transmission Date: 20090109
  Serious: Yes (Death)
  Sender: FDA-Public Use
  Company Number: PHEH2008US06422

PATIENT
  Sex: Female

DRUGS (2)
  1. AREDIA [Suspect]
     Indication: NEOPLASM MALIGNANT
     Dosage: MONTHLY
  2. ZOMETA [Suspect]
     Indication: OSTEOPOROSIS
     Dosage: MONTHLY

REACTIONS (4)
  - ANXIETY [None]
  - GENERAL PHYSICAL HEALTH DETERIORATION [None]
  - INJURY [None]
  - OSTEONECROSIS [None]
